FAERS Safety Report 4387443-X (Version None)
Quarter: 2004Q2

REPORT INFORMATION
  Report Type: 
  Country: None (occurrence: None)
  Receive Date: 20040629
  Receipt Date: 20040629
  Transmission Date: 20050107
  Serious: No
  Sender: FDA-Public Use
  Company Number: None

PATIENT
  Age: 34 Year
  Sex: Male
  Weight: 76.2043 kg

DRUGS (3)
  1. ISONIAZID [Suspect]
     Indication: SKIN TEST POSITIVE
     Dosage: 900 MG PO 2X A WEEK
     Route: 048
     Dates: start: 20040319
  2. ISONIAZID [Suspect]
     Indication: TUBERCULOSIS
     Dosage: 900 MG PO 2X A WEEK
     Route: 048
     Dates: start: 20040319
  3. B6 [Concomitant]

REACTIONS (4)
  - ALANINE AMINOTRANSFERASE INCREASED [None]
  - ASPARTATE AMINOTRANSFERASE INCREASED [None]
  - BLOOD BILIRUBIN INCREASED [None]
  - LIVER FUNCTION TEST ABNORMAL [None]
